FAERS Safety Report 14183842 (Version 3)
Quarter: 2018Q2

REPORT INFORMATION
  Report Type: Spontaneous
  Country: JP (occurrence: JP)
  Receive Date: 20171113
  Receipt Date: 20180516
  Transmission Date: 20180711
  Serious: Yes (Death, Other)
  Sender: FDA-Public Use
  Company Number: JP-009507513-1708JPN002487J

PATIENT
  Age: 78 Year
  Sex: Male

DRUGS (2)
  1. MORPHINE SULFATE HYDRATE [Concomitant]
     Indication: PAIN
     Dosage: UNK
     Route: 065
  2. KEYTRUDA [Suspect]
     Active Substance: PEMBROLIZUMAB
     Indication: LUNG NEOPLASM MALIGNANT
     Dosage: 200 MG, QW
     Route: 041
     Dates: start: 20170803, end: 2017

REACTIONS (4)
  - Malignant neoplasm progression [Fatal]
  - Blood bilirubin increased [Unknown]
  - Decreased appetite [Unknown]
  - Amylase increased [Unknown]

NARRATIVE: CASE EVENT DATE: 2017
